FAERS Safety Report 9861738 (Version 1)
Quarter: 2014Q1

REPORT INFORMATION
  Report Type: Spontaneous
  Country: JP (occurrence: JP)
  Receive Date: 20140203
  Receipt Date: 20140203
  Transmission Date: 20141002
  Serious: Yes (Hospitalization)
  Sender: FDA-Public Use
  Company Number: JP-ROCHE-1340716

PATIENT
  Age: 17 Year
  Sex: Female
  Weight: 38 kg

DRUGS (1)
  1. ROCEPHIN [Suspect]
     Indication: ENDOCARDITIS
     Route: 042

REACTIONS (1)
  - Cholecystitis [Unknown]
